FAERS Safety Report 14896252 (Version 2)
Quarter: 2018Q3

REPORT INFORMATION
  Report Type: Spontaneous
  Country: US (occurrence: US)
  Receive Date: 20180515
  Receipt Date: 20180814
  Transmission Date: 20181010
  Serious: No
  Sender: FDA-Public Use
  Company Number: US-CELLTRION INC.-2018US019207

PATIENT

DRUGS (2)
  1. INFLECTRA [Suspect]
     Active Substance: INFLIXIMAB-DYYB
     Indication: RHEUMATOID ARTHRITIS
     Dosage: UNK
     Route: 065
  2. MELLARIL [Concomitant]
     Active Substance: THIORIDAZINE HYDROCHLORIDE

REACTIONS (2)
  - Hypersensitivity [Unknown]
  - Abdominal pain [Recovered/Resolved]
